FAERS Safety Report 12651248 (Version 5)
Quarter: 2017Q2

REPORT INFORMATION
  Report Type: Report from Study
  Country: CA (occurrence: CA)
  Receive Date: 20160815
  Receipt Date: 20170516
  Transmission Date: 20170830
  Serious: Yes (Hospitalization, Other)
  Sender: FDA-Public Use
  Company Number: PHHY2016CA110003

PATIENT
  Age: 76 Year
  Sex: Female

DRUGS (7)
  1. EXJADE [Suspect]
     Active Substance: DEFERASIROX
     Indication: SIDEROBLASTIC ANAEMIA
     Dosage: 1000 MG, QD
     Route: 048
     Dates: start: 20160422
  2. LUCENTIS [Suspect]
     Active Substance: RANIBIZUMAB
     Indication: MACULAR DEGENERATION
     Dosage: 10 MG, QMO (EACH EYE)
     Route: 031
     Dates: start: 201507
  3. LUCENTIS [Suspect]
     Active Substance: RANIBIZUMAB
     Dosage: UNK, Q3MO
     Route: 031
     Dates: start: 201612
  4. EXJADE [Suspect]
     Active Substance: DEFERASIROX
     Dosage: 1000 MG ONE DAY AND 500MG THE NEXT DAY
     Route: 048
  5. LUCENTIS [Suspect]
     Active Substance: RANIBIZUMAB
     Dosage: UNK, Q3MO THIRD INJECTION
     Route: 031
     Dates: start: 20170329
  6. LEVOTHYROXINE. [Concomitant]
     Active Substance: LEVOTHYROXINE
     Indication: PRODUCT USED FOR UNKNOWN INDICATION
     Dosage: 0.1 MG/ML, UNK
     Route: 065
  7. ATIVAN [Concomitant]
     Active Substance: LORAZEPAM
     Indication: PRODUCT USED FOR UNKNOWN INDICATION
     Dosage: 1 MG, UNK
     Route: 065

REACTIONS (19)
  - Aortic stenosis [Unknown]
  - Cough [Unknown]
  - Lung neoplasm malignant [Unknown]
  - Full blood count decreased [Unknown]
  - Cardiac disorder [Unknown]
  - Dysstasia [Unknown]
  - Pneumonia [Unknown]
  - Visual impairment [Unknown]
  - Influenza [Unknown]
  - Haemoglobin decreased [Unknown]
  - Bone marrow disorder [Unknown]
  - Feeling abnormal [Unknown]
  - Psychiatric symptom [Unknown]
  - Lower respiratory tract infection [Unknown]
  - Serum ferritin decreased [Unknown]
  - Inappropriate schedule of drug administration [Unknown]
  - Drug ineffective [Unknown]
  - Eye haemorrhage [Unknown]
  - Gait disturbance [Unknown]

NARRATIVE: CASE EVENT DATE: 20161231
